FAERS Safety Report 5685771-9 (Version None)
Quarter: 2008Q1

REPORT INFORMATION
  Report Type: 
  Country: None (occurrence: None)
  Receive Date: 20080328
  Receipt Date: 20070831
  Transmission Date: 20080703
  Serious: No
  Sender: FDA-Public Use
  Company Number: US-BAYER-US-2007-033480

PATIENT
  Age: 34 Year
  Sex: Female
  Weight: 178 kg

DRUGS (3)
  1. MIRENA [Suspect]
     Indication: CONTRACEPTION
     Route: 015
     Dates: start: 20061101, end: 20070820
  2. COREG [Concomitant]
     Indication: BLOOD PRESSURE
     Dosage: UNIT DOSE: 25 MG
     Route: 048
  3. LABETALOL HCL [Concomitant]
     Indication: BLOOD PRESSURE

REACTIONS (2)
  - IUCD COMPLICATION [None]
  - PREGNANCY WITH CONTRACEPTIVE DEVICE [None]
